FAERS Safety Report 6171648-1 (Version None)
Quarter: 2009Q2

REPORT INFORMATION
  Report Type: 
  Country: None (occurrence: None)
  Receive Date: 20090427
  Receipt Date: 20090427
  Transmission Date: 20091009
  Serious: Yes (Hospitalization)
  Sender: FDA-Public Use
  Company Number: None

PATIENT
  Age: 50 Year
  Sex: Female
  Weight: 111 kg

DRUGS (13)
  1. OXYCONTIN [Suspect]
     Indication: PAIN
     Dosage: 80 MG BID PO, PRIOR TO ADMIT
     Route: 048
  2. OXYCODONE AND ACETAMINOPHEN [Suspect]
     Indication: PAIN
     Dosage: 5/325 PRN PO, PRIOR TO ADMIT
     Route: 048
  3. ZOLPIDEM [Concomitant]
  4. TRAZODONE HCL [Concomitant]
  5. SIMVASTATIN [Concomitant]
  6. METOPROLOL SUCCINATE [Concomitant]
  7. METFORMIN HCL [Concomitant]
  8. LORAZEPAM [Concomitant]
  9. LISINOPRIL [Concomitant]
  10. LEVOTHYROXINE SODIUM [Concomitant]
  11. GLYBURIDE [Concomitant]
  12. GABAPENTIN [Concomitant]
  13. BACLOFEN [Concomitant]

REACTIONS (4)
  - ACCIDENTAL OVERDOSE [None]
  - LETHARGY [None]
  - RESPIRATORY DEPRESSION [None]
  - SOMNOLENCE [None]
